FAERS Safety Report 4491249-0 (Version None)
Quarter: 2004Q4

REPORT INFORMATION
  Report Type: 
  Country: None (occurrence: None)
  Receive Date: 20041101
  Receipt Date: 20041018
  Transmission Date: 20050328
  Serious: Yes (Hospitalization)
  Sender: FDA-Public Use
  Company Number: FLUV00304003754

PATIENT
  Age: 44 Year
  Sex: Male

DRUGS (3)
  1. FLUVOXAMINE MALEATE [Suspect]
     Indication: SCHIZOPHRENIA, PARANOID TYPE
     Dosage: 100 MILLIGRAM(S) QD ORAL
     Route: 048
     Dates: start: 20040805, end: 20040910
  2. CLOZAPINE [Suspect]
     Indication: SCHIZOPHRENIA, PARANOID TYPE
     Dosage: 50 MILLIGRAM(S) QD ORAL
     Route: 048
     Dates: start: 20040805, end: 20040914
  3. ORFIRIL (VALPROATE SODIUM) [Concomitant]

REACTIONS (3)
  - DRUG LEVEL DECREASED [None]
  - EOSINOPHILIA [None]
  - TREATMENT NONCOMPLIANCE [None]
